FAERS Safety Report 9398509 (Version 1)
Quarter: 2013Q3

REPORT INFORMATION
  Report Type: Spontaneous
  Country: DE (occurrence: DE)
  Receive Date: 20130712
  Receipt Date: 20130712
  Transmission Date: 20140515
  Serious: Yes (Hospitalization)
  Sender: FDA-Public Use
  Company Number: GXKR2013DE002370

PATIENT
  Sex: 0

DRUGS (3)
  1. METHOTREXATE [Suspect]
     Indication: PSORIATIC ARTHROPATHY
     Route: 058
     Dates: start: 20041021
  2. ENBREL [Suspect]
     Indication: PSORIATIC ARTHROPATHY
     Route: 058
     Dates: start: 20120321
  3. FOLCUR [Concomitant]
     Indication: PSORIATIC ARTHROPATHY
     Dates: start: 20041021

REACTIONS (1)
  - Breast cancer [Not Recovered/Not Resolved]
